FAERS Safety Report 21040997 (Version 4)
Quarter: 2022Q3

REPORT INFORMATION
  Report Type: Report from Study
  Country: IT (occurrence: IT)
  Receive Date: 20220704
  Receipt Date: 20220829
  Transmission Date: 20221026
  Serious: Yes (Other)
  Sender: FDA-Public Use
  Company Number: IT-NOVARTISPH-NVSC2022IT149250

PATIENT
  Age: 59 Year
  Sex: Female
  Weight: 61 kg

DRUGS (6)
  1. CERITINIB [Suspect]
     Active Substance: CERITINIB
     Indication: Neoplasm malignant
     Dosage: 750 MG, QD
     Route: 048
     Dates: start: 20170824, end: 20220627
  2. TIROSINT [Concomitant]
     Active Substance: LEVOTHYROXINE SODIUM
     Indication: Hypothyroidism
     Dosage: 125 UG/DIE
     Route: 048
     Dates: start: 20220627
  3. PAROXETINE [Concomitant]
     Active Substance: PAROXETINE
     Indication: Depression
     Dosage: 20 MG/DIE
     Route: 048
     Dates: start: 20220627
  4. ENOXAPARIN [Concomitant]
     Active Substance: ENOXAPARIN
     Indication: Embolism
     Dosage: 1000 IU
     Route: 058
     Dates: start: 20220719
  5. CIPROFLOXACIN [Concomitant]
     Active Substance: CIPROFLOXACIN
     Indication: Infection prophylaxis
     Dosage: 500 MG
     Route: 048
     Dates: start: 20220719
  6. METRONIDAZOLE [Concomitant]
     Active Substance: METRONIDAZOLE
     Indication: Infection prophylaxis
     Dosage: 250 MGX3
     Route: 048
     Dates: start: 20220719

REACTIONS (1)
  - Adenocarcinoma of colon [Recovered/Resolved]

NARRATIVE: CASE EVENT DATE: 20220620
